FAERS Safety Report 21864129 (Version 1)
Quarter: 2023Q1

REPORT INFORMATION
  Report Type: Report from Study
  Country: US (occurrence: US)
  Receive Date: 20230116
  Receipt Date: 20230116
  Transmission Date: 20230418
  Serious: Yes (Death, Other)
  Sender: FDA-Public Use
  Company Number: US-ACADIA PHARMACEUTICALS INC.-ACA-2023-PIM-000084

PATIENT
  Age: 72 Year
  Sex: Female

DRUGS (17)
  1. NUPLAZID [Suspect]
     Active Substance: PIMAVANSERIN TARTRATE
     Indication: Parkinson^s disease
     Dosage: 34 MILLIGRAM, QD
     Route: 048
     Dates: start: 202204
  2. SINEMET [Concomitant]
     Active Substance: CARBIDOPA\LEVODOPA
  3. EFFEXOR [Concomitant]
     Active Substance: VENLAFAXINE HYDROCHLORIDE
  4. REMERON [Concomitant]
     Active Substance: MIRTAZAPINE
  5. QUETIAPINE [Concomitant]
     Active Substance: QUETIAPINE
  6. ALPRAZOLAM [Concomitant]
     Active Substance: ALPRAZOLAM
  7. IRON [Concomitant]
     Active Substance: IRON
  8. ASPIRIN [Concomitant]
     Active Substance: ASPIRIN
  9. MYRBETRIQ [Concomitant]
     Active Substance: MIRABEGRON
  10. DIVALPROEX SODIUM [Concomitant]
     Active Substance: DIVALPROEX SODIUM
  11. PYRIDOXINE [Concomitant]
     Active Substance: PYRIDOXINE
  12. PANTOPRAZOLE [Concomitant]
     Active Substance: PANTOPRAZOLE
  13. NEOPROFEN [IBUPROFEN] [Concomitant]
  14. VITAMIN D2 [Concomitant]
     Active Substance: ERGOCALCIFEROL
  15. MUCINEX [Concomitant]
     Active Substance: GUAIFENESIN
  16. ZETIA [Concomitant]
     Active Substance: EZETIMIBE
  17. COLACE [Concomitant]
     Active Substance: DOCUSATE SODIUM

REACTIONS (3)
  - Death [Fatal]
  - Back injury [Unknown]
  - Fall [Unknown]

NARRATIVE: CASE EVENT DATE: 20221227
